FAERS Safety Report 9284493 (Version 1)
Quarter: 2013Q2

REPORT INFORMATION
  Report Type: Spontaneous
  Country: FI (occurrence: FI)
  Receive Date: 20130510
  Receipt Date: 20130510
  Transmission Date: 20140414
  Serious: Yes (Life-Threatening, Hospitalization)
  Sender: FDA-Public Use
  Company Number: FI-B.I. PHARMACEUTICALS,INC./RIDGEFIELD-2013-SW-00255SF

PATIENT
  Age: 83 Year
  Sex: Female

DRUGS (13)
  1. PRADAXA [Suspect]
     Indication: ATRIAL FIBRILLATION
     Dosage: 110 MG
     Route: 048
     Dates: start: 201301, end: 20130428
  2. PRADAXA [Suspect]
     Indication: CARDIOVASCULAR EVENT PROPHYLAXIS
  3. CALCICHEW D3 APPELSIINI [Concomitant]
     Indication: OSTEOPOROSIS PROPHYLAXIS
     Dosage: STRENGTH: 500MG/ 5 MICROG, DOSE 2 X 1
     Route: 048
  4. DIGOXIN MITE [Concomitant]
     Indication: ATRIAL FIBRILLATION
     Dosage: 0.0625 MG
     Route: 048
  5. DILZEM [Concomitant]
     Indication: HYPERTENSION
     Dosage: DOSE: 180 MG 2 X 1
     Route: 048
  6. FURESIS [Concomitant]
     Indication: HYPERTENSION
     Dosage: 40 MG
     Route: 048
  7. KALEORID [Concomitant]
     Indication: PROPHYLAXIS
     Dosage: 2 G
     Route: 048
  8. PHYSIOTENS [Concomitant]
     Indication: HYPERTENSION
     Dosage: 0.4 MG
     Route: 048
  9. PREDNISOLON [Concomitant]
     Indication: NECROSIS
     Dosage: 2.5 MG
     Route: 048
  10. TRADOLAN RETARD [Concomitant]
     Indication: PAIN
     Dosage: 300 MG
     Route: 048
  11. COVERSYL COMP NOVUM [Concomitant]
     Indication: HYPERTENSION
     Dosage: STRENGTH: 5 MG/1.25 MG; DOSE 1 X 1
     Route: 048
     Dates: end: 20130429
  12. SOMAC [Concomitant]
     Indication: PROPHYLAXIS
     Dosage: 20 MG
     Route: 048
     Dates: end: 20130429
  13. ZANIDIP [Concomitant]
     Indication: HYPERTENSION
     Dosage: 10 MG
     Route: 048
     Dates: end: 20130429

REACTIONS (2)
  - Deep vein thrombosis [Not Recovered/Not Resolved]
  - Pulmonary embolism [Not Recovered/Not Resolved]
